FAERS Safety Report 21609030 (Version 1)
Quarter: 2022Q4

REPORT INFORMATION
  Report Type: Report from Study
  Country: CN (occurrence: CN)
  Receive Date: 20221117
  Receipt Date: 20221117
  Transmission Date: 20230112
  Serious: Yes (Death)
  Sender: FDA-Public Use
  Company Number: CN-TEVA-2022-CN-2826343

PATIENT

DRUGS (3)
  1. CLOPIDOGREL [Suspect]
     Active Substance: CLOPIDOGREL BISULFATE
     Indication: Antiplatelet therapy
     Dosage: DUAL ANTIPLATELET THERAPY ADMINISTRATED AT LEAST 3-5 DAYS BEFORE THE PROCEDURE , 75 MG
     Route: 065
  2. ASPIRIN [Suspect]
     Active Substance: ASPIRIN
     Indication: Antiplatelet therapy
     Dosage: DUAL ANTIPLATELET THERAPY AT LEAST 3-5 DAYS BEFORE THE PROCEDURE , 100 MG
     Route: 065
  3. ASPIRIN [Suspect]
     Active Substance: ASPIRIN
     Dosage: 100 MILLIGRAM DAILY; MONOTHERAPY, AFTER DUAL ANTIPLATELET THERAPY
     Route: 065

REACTIONS (1)
  - Drug ineffective [Fatal]
